FAERS Safety Report 6661783-3 (Version None)
Quarter: 2010Q1

REPORT INFORMATION
  Report Type: 
  Country: None (occurrence: None)
  Receive Date: 20100331
  Receipt Date: 20090706
  Transmission Date: 20100710
  Serious: Yes (Other)
  Sender: FDA-Public Use
  Company Number: US-BRISTOL-MYERS SQUIBB COMPANY-14672612

PATIENT
  Age: 27 Year
  Sex: Female

DRUGS (3)
  1. ERBITUX [Suspect]
     Indication: HEAD AND NECK CANCER
     Dosage: RECEIVED 1ST DOSE
     Route: 042
     Dates: start: 20090609
  2. ZANTAC [Concomitant]
     Dates: start: 20090609
  3. BENADRYL [Concomitant]
     Dates: start: 20090609

REACTIONS (1)
  - HYPERSENSITIVITY [None]
